FAERS Safety Report 8358485-4 (Version None)
Quarter: 2012Q2

REPORT INFORMATION
  Report Type: 
  Country: None (occurrence: None)
  Receive Date: 20120514
  Receipt Date: 20120510
  Transmission Date: 20120825
  Serious: Yes (Other)
  Sender: FDA-Public Use
  Company Number: US-PFIZER INC-2010079550

PATIENT
  Sex: Female
  Weight: 86.168 kg

DRUGS (4)
  1. LYRICA [Suspect]
     Indication: FIBROMYALGIA
     Dosage: 75 MG, UNK
     Route: 048
     Dates: start: 20080101
  2. LYRICA [Suspect]
     Dosage: UNK
     Route: 048
     Dates: end: 20080101
  3. CYMBALTA [Concomitant]
     Indication: DEPRESSION
     Dosage: UNK
  4. LISINOPRIL [Concomitant]
     Indication: HYPERTENSION
     Dosage: UNK

REACTIONS (4)
  - FIBROMYALGIA [None]
  - WEIGHT INCREASED [None]
  - DRUG INEFFECTIVE [None]
  - HIP FRACTURE [None]
